FAERS Safety Report 7565635-6 (Version None)
Quarter: 2011Q2

REPORT INFORMATION
  Report Type: 
  Country: None (occurrence: None)
  Receive Date: 20110623
  Receipt Date: 20110615
  Transmission Date: 20111010
  Serious: Yes (Other)
  Sender: FDA-Public Use
  Company Number: NL-AMGEN-NLDSP2011030975

PATIENT
  Age: 33 Year
  Sex: Female

DRUGS (9)
  1. FOLIC ACID [Concomitant]
     Dosage: UNK
  2. CALCICHEW [Concomitant]
     Dosage: UNK
  3. ENBREL [Suspect]
     Indication: RHEUMATOID ARTHRITIS
     Dosage: 25 MG, WEEKLY
  4. METHOTREXATE SODIUM [Concomitant]
     Dosage: UNK
  5. PLAQUENIL [Concomitant]
     Dosage: UNK
  6. OMEPRAZOLE [Concomitant]
     Dosage: UNK
  7. ENBREL [Suspect]
     Dosage: 50 MG, WEEKLY
  8. PREDNISOLONE [Concomitant]
     Dosage: UNK
  9. DICLOFENAC [Concomitant]
     Dosage: UNK

REACTIONS (1)
  - ABORTION [None]
